FAERS Safety Report 19705209 (Version 1)
Quarter: 2021Q3

REPORT INFORMATION
  Report Type: Spontaneous
  Country: US (occurrence: US)
  Receive Date: 20210814
  Receipt Date: 20210814
  Transmission Date: 20211014
  Serious: Yes (Hospitalization)
  Sender: FDA-Public Use
  Company Number: None

PATIENT
  Sex: Male
  Weight: 95.5 kg

DRUGS (2)
  1. TAXOL [Suspect]
     Active Substance: PACLITAXEL
  2. CARBOPLATIN. [Suspect]
     Active Substance: CARBOPLATIN

REACTIONS (24)
  - Discomfort [None]
  - Enteritis [None]
  - Septic shock [None]
  - Hypophosphataemia [None]
  - Leukopenia [None]
  - Abdominal pain [None]
  - Abscess [None]
  - Lactic acidosis [None]
  - Febrile neutropenia [None]
  - Nausea [None]
  - Blood creatine increased [None]
  - Thrombocytopenia [None]
  - Respiratory failure [None]
  - Hyponatraemia [None]
  - Anaemia [None]
  - Neutropenic colitis [None]
  - Urinary retention [None]
  - Hypotension [None]
  - Diarrhoea [None]
  - Infrequent bowel movements [None]
  - Pancytopenia [None]
  - Vomiting [None]
  - Colitis [None]
  - Ascites [None]

NARRATIVE: CASE EVENT DATE: 20210723
